FAERS Safety Report 23480243 (Version 1)
Quarter: 2024Q1

REPORT INFORMATION
  Report Type: Spontaneous
  Country: IT (occurrence: IT)
  Receive Date: 20240205
  Receipt Date: 20240205
  Transmission Date: 20240409
  Serious: Yes (Other)
  Sender: FDA-Public Use
  Company Number: None

PATIENT
  Age: 29 Year
  Sex: Male
  Weight: 70 kg

DRUGS (1)
  1. TYSABRI [Suspect]
     Active Substance: NATALIZUMAB
     Indication: Multiple sclerosis
     Dosage: 300 MILLIGRAM CYCLICAL
     Route: 050
     Dates: start: 20210302, end: 20231229

REACTIONS (1)
  - Multiple sclerosis relapse [Not Recovered/Not Resolved]

NARRATIVE: CASE EVENT DATE: 20230101
